FAERS Safety Report 4489771-6 (Version None)
Quarter: 2004Q4

REPORT INFORMATION
  Report Type: 
  Country: None (occurrence: None)
  Receive Date: 20041101
  Receipt Date: 20030605
  Transmission Date: 20050328
  Serious: Yes (Hospitalization, Other)
  Sender: FDA-Public Use
  Company Number: US-MERCK-0306USA00744

PATIENT
  Age: 49 Year
  Sex: Male
  Weight: 109 kg

DRUGS (22)
  1. VIOXX [Suspect]
     Indication: ARTHRITIS
     Route: 048
     Dates: start: 20000601, end: 20010201
  2. VIOXX [Suspect]
     Route: 065
     Dates: start: 20010201, end: 20010101
  3. VIOXX [Suspect]
     Route: 065
  4. VIOXX [Suspect]
     Indication: SYSTEMIC LUPUS ERYTHEMATOSUS
     Route: 048
     Dates: start: 20000601, end: 20010201
  5. VIOXX [Suspect]
     Route: 065
     Dates: start: 20010201, end: 20010101
  6. VIOXX [Suspect]
     Route: 065
  7. PREDNISONE [Concomitant]
     Route: 065
  8. PREDNISONE [Concomitant]
     Route: 065
  9. VICODIN [Concomitant]
     Route: 065
  10. METHOTREXATE [Concomitant]
     Route: 065
  11. METHOTREXATE [Concomitant]
     Route: 065
  12. FOLIC ACID [Concomitant]
     Route: 065
  13. FOLIC ACID [Concomitant]
     Route: 065
  14. LASIX [Concomitant]
     Route: 065
  15. LASIX [Concomitant]
     Route: 048
  16. MULTIVITAMIN [Concomitant]
     Route: 065
  17. CAL-CITRATE [Concomitant]
     Route: 065
  18. LOVENOX [Concomitant]
     Route: 065
  19. COUMADIN [Concomitant]
     Route: 065
  20. PLAVIX [Concomitant]
     Route: 065
  21. ZOLOFT [Concomitant]
     Route: 065
  22. ACIPHEX [Concomitant]
     Route: 065

REACTIONS (21)
  - ADVERSE EVENT [None]
  - ANGINA PECTORIS [None]
  - ANTINUCLEAR ANTIBODY POSITIVE [None]
  - BLOOD PRESSURE INCREASED [None]
  - BURSITIS [None]
  - CONVULSION [None]
  - CORONARY ARTERY DISEASE [None]
  - DEPRESSION [None]
  - DRUG INEFFECTIVE [None]
  - INTERNATIONAL NORMALISED RATIO DECREASED [None]
  - JOINT INJURY [None]
  - JOINT SWELLING [None]
  - LACUNAR INFARCTION [None]
  - MITRAL VALVE INCOMPETENCE [None]
  - MYOCARDIAL INFARCTION [None]
  - OSTEOPENIA [None]
  - PROTHROMBIN TIME ABNORMAL [None]
  - RHEUMATOID ARTHRITIS [None]
  - ROAD TRAFFIC ACCIDENT [None]
  - SCOLIOSIS [None]
  - TRANSIENT ISCHAEMIC ATTACK [None]
